FAERS Safety Report 8582535-3 (Version None)
Quarter: 2012Q3

REPORT INFORMATION
  Report Type: 
  Country: None (occurrence: None)
  Receive Date: 20120809
  Receipt Date: 20120727
  Transmission Date: 20120928
  Serious: Yes (Life-Threatening, Other)
  Sender: FDA-Public Use
  Company Number: JP-ROCHE-1088708

PATIENT
  Sex: Male
  Weight: 52 kg

DRUGS (1)
  1. ROCEPHIN [Suspect]
     Indication: CHOLECYSTITIS ACUTE
     Route: 041
     Dates: start: 20120613, end: 20120620

REACTIONS (2)
  - DRUG ERUPTION [None]
  - RENAL DISORDER [None]
